FAERS Safety Report 20750509 (Version 1)
Quarter: 2022Q2

REPORT INFORMATION
  Report Type: Spontaneous
  Country: US (occurrence: None)
  Receive Date: 20220426
  Receipt Date: 20220426
  Transmission Date: 20220720
  Serious: Yes (Hospitalization, Other)
  Sender: FDA-Public Use
  Company Number: None

PATIENT
  Age: 57 Year
  Sex: Female
  Weight: 65.77 kg

DRUGS (4)
  1. POLYSPORIN [Suspect]
     Active Substance: BACITRACIN ZINC\POLYMYXIN B SULFATE
     Indication: Wound treatment
     Dosage: FREQUENCY : ONCE;?
     Dates: start: 20220321, end: 20220321
  2. ALPRAZOLAM [Concomitant]
     Active Substance: ALPRAZOLAM
  3. ESTRING [Concomitant]
     Active Substance: ESTRADIOL
  4. TYLENOL [Concomitant]
     Active Substance: ACETAMINOPHEN

REACTIONS (6)
  - Product physical consistency issue [None]
  - Product storage error [None]
  - Skin fragility [None]
  - Poor quality product administered [None]
  - Application site laceration [None]
  - Product packaging confusion [None]

NARRATIVE: CASE EVENT DATE: 20220321
